FAERS Safety Report 9785902 (Version 1)
Quarter: 2013Q4

REPORT INFORMATION
  Report Type: Spontaneous
  Country: US (occurrence: US)
  Receive Date: 20131227
  Receipt Date: 20131227
  Transmission Date: 20140711
  Serious: No
  Sender: FDA-Public Use
  Company Number: US-PFIZER INC-2013370107

PATIENT
  Age: 67 Year
  Sex: Female
  Weight: 48.07 kg

DRUGS (1)
  1. PRISTIQ [Suspect]
     Indication: MENTAL DISORDER
     Dosage: 50 MG, DAILY
     Dates: start: 2009, end: 201312

REACTIONS (4)
  - Back pain [Not Recovered/Not Resolved]
  - Pain [Not Recovered/Not Resolved]
  - Pain in extremity [Not Recovered/Not Resolved]
  - Drug withdrawal syndrome [Not Recovered/Not Resolved]
